FAERS Safety Report 7864598-3 (Version None)
Quarter: 2011Q4

REPORT INFORMATION
  Report Type: 
  Country: None (occurrence: None)
  Receive Date: 20111028
  Receipt Date: 20110420
  Transmission Date: 20120403
  Serious: No
  Sender: FDA-Public Use
  Company Number: US-GLAXOSMITHKLINE-A0924793A

PATIENT
  Age: 48 Year
  Sex: Male
  Weight: 104.5 kg

DRUGS (7)
  1. NORTRIPTYLINE HCL [Concomitant]
     Indication: MIGRAINE PROPHYLAXIS
  2. SUMATRIPTAN SUCCINATE [Suspect]
     Indication: MIGRAINE
     Dosage: 20MG AS REQUIRED
     Route: 045
  3. ATENOLOL [Concomitant]
     Indication: MIGRAINE PROPHYLAXIS
  4. CRESTOR [Concomitant]
     Indication: BLOOD CHOLESTEROL INCREASED
  5. DEPAKOTE [Concomitant]
     Indication: MIGRAINE PROPHYLAXIS
  6. COUMADIN [Concomitant]
     Indication: ANTICOAGULANT THERAPY
  7. TYLENOL W/ CODEINE [Concomitant]
     Indication: PAIN

REACTIONS (3)
  - MEDICATION RESIDUE [None]
  - DRUG INEFFECTIVE [None]
  - PRODUCT QUALITY ISSUE [None]
